FAERS Safety Report 15714655 (Version 2)
Quarter: 2019Q1

REPORT INFORMATION
  Report Type: Spontaneous
  Country: AU (occurrence: AU)
  Receive Date: 20181212
  Receipt Date: 20190116
  Transmission Date: 20190417
  Serious: Yes (Other)
  Sender: FDA-Public Use
  Company Number: US-ALKEM LABORATORIES LIMITED-US-ALKEM-2018-10794

PATIENT
  Age: 45 Year
  Sex: Female

DRUGS (5)
  1. HYDRALAZINE HYDROCHLORIDE. [Suspect]
     Active Substance: HYDRALAZINE HYDROCHLORIDE
     Dosage: 150 MG, QD
     Route: 065
     Dates: start: 1974
  2. CLONIDINE. [Concomitant]
     Active Substance: CLONIDINE
     Indication: ESSENTIAL HYPERTENSION
     Dosage: 450 ?G, UNK
     Route: 065
  3. GUANETHIDINE. [Concomitant]
     Active Substance: GUANETHIDINE
     Indication: ESSENTIAL HYPERTENSION
     Dosage: 50 MG, UNK
     Route: 065
  4. CHLOROTHIAZIDE. [Concomitant]
     Active Substance: CHLOROTHIAZIDE
     Indication: ESSENTIAL HYPERTENSION
     Dosage: 0.5 G, UNK
     Route: 065
  5. HYDRALAZINE HYDROCHLORIDE. [Suspect]
     Active Substance: HYDRALAZINE HYDROCHLORIDE
     Indication: ESSENTIAL HYPERTENSION
     Dosage: 200 MG, QD
     Route: 065
     Dates: start: 1977

REACTIONS (3)
  - Renal failure [Recovering/Resolving]
  - Glomerulonephritis proliferative [Recovering/Resolving]
  - Vasculitis necrotising [Recovering/Resolving]
